FAERS Safety Report 17533409 (Version 2)
Quarter: 2020Q1

REPORT INFORMATION
  Report Type: Spontaneous
  Country: JP (occurrence: JP)
  Receive Date: 20200312
  Receipt Date: 20200316
  Transmission Date: 20200409
  Serious: Yes (Other)
  Sender: FDA-Public Use
  Company Number: JP-PFIZER INC-2020107344

PATIENT
  Age: 87 Year
  Sex: Male

DRUGS (20)
  1. SOLU-CORTEF [Suspect]
     Active Substance: HYDROCORTISONE SODIUM SUCCINATE
     Dosage: 100 MG, DAILY
     Route: 042
     Dates: start: 20200227, end: 20200227
  2. SOLU-CORTEF [Suspect]
     Active Substance: HYDROCORTISONE SODIUM SUCCINATE
     Dosage: 100 MG, DAILY
     Route: 042
     Dates: start: 20200303, end: 20200303
  3. SODIUM CHLORIDE. [Concomitant]
     Active Substance: SODIUM CHLORIDE
     Dosage: 20 ML, DAILY
     Route: 042
     Dates: start: 20200214, end: 20200214
  4. SOLU-CORTEF [Suspect]
     Active Substance: HYDROCORTISONE SODIUM SUCCINATE
     Dosage: 100 MG, DAILY
     Route: 042
     Dates: start: 20200220, end: 202002
  5. MONTELUKAST [Suspect]
     Active Substance: MONTELUKAST SODIUM
     Dosage: 10 MG, 1X/DAY
     Dates: start: 20200206
  6. VIDARABINE [Suspect]
     Active Substance: VIDARABINE
     Dosage: 5 G, DAILY
     Dates: start: 20191120, end: 20191120
  7. SODIUM CHLORIDE. [Concomitant]
     Active Substance: SODIUM CHLORIDE
     Dosage: 100 ML, DAILY
     Route: 042
     Dates: start: 20200206, end: 20200207
  8. VIDARABINE [Suspect]
     Active Substance: VIDARABINE
     Dosage: 5 G, DAILY
     Dates: start: 20191203, end: 20191203
  9. SODIUM CHLORIDE. [Concomitant]
     Active Substance: SODIUM CHLORIDE
     Dosage: 100 ML, DAILY
     Route: 042
     Dates: start: 2019
  10. SODIUM CHLORIDE. [Concomitant]
     Active Substance: SODIUM CHLORIDE
     Dosage: 20 ML, DAILY
     Route: 042
     Dates: start: 20200220, end: 202002
  11. SOLU-CORTEF [Suspect]
     Active Substance: HYDROCORTISONE SODIUM SUCCINATE
     Dosage: 100 MG, DAILY
     Route: 042
     Dates: start: 20200212, end: 20200214
  12. SODIUM CHLORIDE. [Concomitant]
     Active Substance: SODIUM CHLORIDE
     Dosage: 20 ML, DAILY
     Route: 042
     Dates: start: 20200227, end: 20200227
  13. SOLU-CORTEF [Suspect]
     Active Substance: HYDROCORTISONE SODIUM SUCCINATE
     Indication: SEASONAL ALLERGY
     Dosage: 100 MG, DAILY
     Route: 042
     Dates: start: 2019
  14. XYZAL [Suspect]
     Active Substance: LEVOCETIRIZINE DIHYDROCHLORIDE
     Dosage: 1 TABLET ONCE DAILY IN THE EVENING
     Dates: start: 20200206
  15. VIDARABINE [Suspect]
     Active Substance: VIDARABINE
     Dosage: 5 G, DAILY
     Dates: start: 20200219, end: 20200219
  16. SODIUM CHLORIDE. [Concomitant]
     Active Substance: SODIUM CHLORIDE
     Dosage: 20 ML, DAILY
     Route: 042
     Dates: start: 20200303, end: 20200303
  17. SOLU-CORTEF [Suspect]
     Active Substance: HYDROCORTISONE SODIUM SUCCINATE
     Dosage: 100 MG, DAILY
     Route: 042
     Dates: start: 20200206, end: 20200207
  18. VALACICLOVIR HYDROCHLORIDE [Suspect]
     Active Substance: VALACYCLOVIR HYDROCHLORIDE
     Indication: ORAL HERPES
     Dosage: 2 TABLETS TWICE DAILY IN THE MORNING AND THE EVENING
     Dates: start: 20191120
  19. SODIUM CHLORIDE. [Concomitant]
     Active Substance: SODIUM CHLORIDE
     Dosage: 100 ML, DAILY
     Route: 042
     Dates: start: 20200212, end: 20200213
  20. VALACICLOVIR HYDROCHLORIDE [Suspect]
     Active Substance: VALACYCLOVIR HYDROCHLORIDE
     Dosage: 2 TABLETS TWICE DAILY IN THE MORNING AND THE EVENING
     Dates: start: 20200219

REACTIONS (1)
  - Urinary retention [Unknown]

NARRATIVE: CASE EVENT DATE: 20200225
